FAERS Safety Report 6370020-9 (Version None)
Quarter: 2009Q3

REPORT INFORMATION
  Report Type: 
  Country: None (occurrence: None)
  Receive Date: 20090923
  Receipt Date: 20071213
  Transmission Date: 20100115
  Serious: Yes (Hospitalization)
  Sender: FDA-Public Use
  Company Number: US-ASTRAZENECA-2006UW07815

PATIENT
  Age: 13808 Day
  Sex: Female
  Weight: 89.4 kg

DRUGS (40)
  1. SEROQUEL [Suspect]
     Indication: BIPOLAR DISORDER
     Dosage: 100-1500 MG
     Route: 048
     Dates: start: 19991012
  2. SEROQUEL [Suspect]
     Indication: BIPOLAR I DISORDER
     Dosage: 100-1500 MG
     Route: 048
     Dates: start: 19991012
  3. SEROQUEL [Suspect]
     Indication: SLEEP DISORDER
     Dosage: 100-1500 MG
     Route: 048
     Dates: start: 19991012
  4. SEROQUEL [Suspect]
     Route: 048
     Dates: start: 20010101
  5. SEROQUEL [Suspect]
     Route: 048
     Dates: start: 20010101
  6. SEROQUEL [Suspect]
     Route: 048
     Dates: start: 20010101
  7. LISINOPRIL [Concomitant]
  8. LAMOTRIGINE [Concomitant]
  9. ETODOLAC [Concomitant]
  10. KLONOPIN [Concomitant]
  11. TOPAMAX [Concomitant]
  12. DEPAKOTE [Concomitant]
  13. WELLBUTRIN SR [Concomitant]
  14. LASIX [Concomitant]
  15. PREDNISONE TAB [Concomitant]
  16. SINGULAIR [Concomitant]
  17. CONCERTA [Concomitant]
  18. ABILIFY [Concomitant]
  19. FLURAZEPAM [Concomitant]
  20. LIPITOR [Concomitant]
  21. NEURONTIN [Concomitant]
  22. LAMISIL [Concomitant]
  23. ALBUTEROL [Concomitant]
  24. LEVAQUIN [Concomitant]
  25. FLOVENT [Concomitant]
  26. VICODIN [Concomitant]
  27. AMBIEN [Concomitant]
  28. CELEBREX [Concomitant]
  29. PREVACID [Concomitant]
  30. RESTORIL [Concomitant]
  31. IMITREX [Concomitant]
  32. AVANDIA [Concomitant]
  33. GEODON [Concomitant]
  34. VISTARIL [Concomitant]
  35. CIPROFLAXACIN [Concomitant]
  36. GLUCOPHAGE [Concomitant]
  37. WELLBUTRIN [Concomitant]
  38. NOVOLIN REGULAR INSULIN [Concomitant]
  39. TRICOR [Concomitant]
  40. DESYREL [Concomitant]

REACTIONS (1)
  - DIABETES MELLITUS [None]
